FAERS Safety Report 7408864-4 (Version None)
Quarter: 2011Q2

REPORT INFORMATION
  Report Type: 
  Country: None (occurrence: None)
  Receive Date: 20110412
  Receipt Date: 20110407
  Transmission Date: 20111010
  Serious: Yes (Death, Hospitalization)
  Sender: FDA-Public Use
  Company Number: PHHY2011ML28731

PATIENT
  Sex: Female
  Weight: 78 kg

DRUGS (1)
  1. GLEEVEC [Suspect]
     Dosage: 600 MG, DAILY
     Route: 048
     Dates: start: 20091122, end: 20110329

REACTIONS (8)
  - RESPIRATORY DISTRESS [None]
  - BRONCHOPNEUMOPATHY [None]
  - CHEST PAIN [None]
  - PALLOR [None]
  - ABDOMINAL PAIN [None]
  - ABDOMINAL PAIN UPPER [None]
  - PYREXIA [None]
  - VOMITING [None]
